FAERS Safety Report 7582837-3 (Version None)
Quarter: 2011Q2

REPORT INFORMATION
  Report Type: 
  Country: None (occurrence: None)
  Receive Date: 20110527
  Receipt Date: 20101227
  Transmission Date: 20111010
  Serious: No
  Sender: FDA-Public Use
  Company Number: US201010004148

PATIENT
  Age: 68 Year
  Sex: Female
  Weight: 103.4 kg

DRUGS (18)
  1. CLONAZEPAM [Concomitant]
  2. LISINOPRIL [Concomitant]
  3. CALCIUM CARBONATE [Concomitant]
  4. FUROSEMIDE [Concomitant]
  5. GLUCOSAMINE CHONDROITIN (CHONDROITIN SULFATE, GLUCOSAMINE) [Concomitant]
  6. OMEGA-3 FATTY ACIDS (OMEGA-3 FATTY ACIDS) [Concomitant]
  7. ACETAMINOPHEN [Concomitant]
  8. GABAPENTIN [Concomitant]
  9. SIMVASTATIN [Concomitant]
  10. ASPIRIN [Concomitant]
  11. FERROUS SULFATE TAB [Concomitant]
  12. BYETTA [Suspect]
     Indication: TYPE 2 DIABETES MELLITUS
     Dosage: 5 UG, 2/D, SUBCUTANEOUS
     Route: 058
  13. RANITIDINE [Concomitant]
  14. AMLODIPINE [Concomitant]
  15. CITALOPRAM HYDROBROMIDE [Concomitant]
  16. MULTIVITAMIN [Concomitant]
  17. LEVOTHYROXINE SODIUM [Concomitant]
  18. TRAMADOL HCL [Concomitant]

REACTIONS (5)
  - FEELING ABNORMAL [None]
  - BLOOD GLUCOSE DECREASED [None]
  - INCORRECT DOSE ADMINISTERED [None]
  - NAUSEA [None]
  - WEIGHT DECREASED [None]
